FAERS Safety Report 8327468-2 (Version None)
Quarter: 2012Q2

REPORT INFORMATION
  Report Type: 
  Country: None (occurrence: None)
  Receive Date: 20120502
  Receipt Date: 20120423
  Transmission Date: 20120825
  Serious: Yes (Hospitalization)
  Sender: FDA-Public Use
  Company Number: US-BAYER-2012-035458

PATIENT
  Age: 36 Year
  Sex: Female

DRUGS (13)
  1. YASMIN [Suspect]
     Indication: GENITAL HAEMORRHAGE
     Dosage: UNK
     Dates: start: 20040901, end: 20041001
  2. BENADRYL [Concomitant]
     Indication: SLEEP DISORDER THERAPY
     Dosage: 50 MG, HS, AS NEEDED
     Route: 048
     Dates: start: 20040930
  3. IBUPROFEN [Concomitant]
     Indication: PAIN
     Dosage: 800 MG, Q 8 HOURS
     Route: 048
     Dates: start: 20040913
  4. DOXYCYCLINE [Concomitant]
     Dosage: 100 MG, BID FOR 10 DAYS
     Route: 048
     Dates: start: 20040910, end: 20040914
  5. TYLENOL (CAPLET) [Concomitant]
  6. LEXAPRO [Concomitant]
  7. YAZ [Suspect]
     Dosage: UNK
     Dates: start: 20040901, end: 20041001
  8. COLACE [Concomitant]
  9. DARVOCET-N 50 [Concomitant]
     Indication: PAIN
     Dosage: 1 TO 2 TABLETS EVERY 4 TO 6 HOURS AS NEEDED
     Dates: start: 20040915
  10. OXYCODONE HCL [Concomitant]
     Dosage: UNK
     Dates: start: 20041005
  11. CHRONIC NARCOTICS [Concomitant]
  12. PERCOCET [Concomitant]
     Dosage: UNK UNK, PRN
     Dates: start: 20040925
  13. PRILOSEC [Concomitant]

REACTIONS (6)
  - ANXIETY [None]
  - EMOTIONAL DISTRESS [None]
  - PULMONARY EMBOLISM [None]
  - INJURY [None]
  - GENERAL PHYSICAL HEALTH DETERIORATION [None]
  - PAIN [None]
